FAERS Safety Report 26095973 (Version 1)
Quarter: 2025Q4

REPORT INFORMATION
  Report Type: Spontaneous
  Country: JP (occurrence: JP)
  Receive Date: 20251127
  Receipt Date: 20251127
  Transmission Date: 20260117
  Serious: Yes (Hospitalization)
  Sender: EMD SERONO INC
  Company Number: JP-Merck Healthcare KGaA-2025059766

PATIENT
  Age: 79 Year
  Sex: Female
  Weight: 68 kg

DRUGS (3)
  1. METGLUCO [Suspect]
     Active Substance: METFORMIN HYDROCHLORIDE
     Indication: Product used for unknown indication
  2. JARDIANCE [Suspect]
     Active Substance: EMPAGLIFLOZIN
     Indication: Blood glucose increased
  3. LINAGLIPTIN [Concomitant]
     Active Substance: LINAGLIPTIN
     Indication: Product used for unknown indication

REACTIONS (2)
  - Blood glucose abnormal [Unknown]
  - Dehydration [Unknown]
